FAERS Safety Report 15636297 (Version 2)
Quarter: 2019Q1

REPORT INFORMATION
  Report Type: Spontaneous
  Country: US (occurrence: US)
  Receive Date: 20181120
  Receipt Date: 20190115
  Transmission Date: 20190417
  Serious: No
  Sender: FDA-Public Use
  Company Number: US-GLENMARK PHARMACEUTICALS-2018GMK037668

PATIENT

DRUGS (1)
  1. MUPIROCIN. [Suspect]
     Active Substance: MUPIROCIN
     Indication: RASH
     Dosage: UNK, USED FOR ROUGHLY 8 MONTHS
     Route: 065

REACTIONS (3)
  - Drug effective for unapproved indication [Unknown]
  - Product packaging issue [Unknown]
  - Product supply issue [Unknown]
